FAERS Safety Report 11663010 (Version 1)
Quarter: 2015Q4

REPORT INFORMATION
  Report Type: Spontaneous
  Country: US (occurrence: US)
  Receive Date: 20151027
  Receipt Date: 20151027
  Transmission Date: 20160304
  Serious: No
  Sender: FDA-Public Use
  Company Number: US-MEDA-2010050039

PATIENT
  Age: 45 Year
  Sex: Male

DRUGS (4)
  1. ONSOLIS [Suspect]
     Active Substance: FENTANYL CITRATE
     Indication: BACK PAIN
     Route: 002
     Dates: start: 20100226, end: 20100421
  2. FENTORA [Concomitant]
     Active Substance: FENTANYL CITRATE
  3. OPANA ER [Concomitant]
     Active Substance: OXYMORPHONE HYDROCHLORIDE
  4. ONSOLIS [Suspect]
     Active Substance: FENTANYL CITRATE
     Indication: BACK PAIN
     Route: 002
     Dates: start: 20100421

REACTIONS (1)
  - Vision blurred [Not Recovered/Not Resolved]

NARRATIVE: CASE EVENT DATE: 201002
